FAERS Safety Report 5813467-9 (Version None)
Quarter: 2008Q3

REPORT INFORMATION
  Report Type: 
  Country: None (occurrence: None)
  Receive Date: 20080716
  Receipt Date: 20080716
  Transmission Date: 20090109
  Serious: Yes (Hospitalization)
  Sender: FDA-Public Use
  Company Number: None

PATIENT
  Age: 81 Year
  Sex: Male

DRUGS (1)
  1. METHOTREXATE [Suspect]
     Indication: RHEUMATOID ARTHRITIS
     Dosage: 15 MG QWEEK  PO
     Route: 048
     Dates: start: 20080315, end: 20080410

REACTIONS (3)
  - FATIGUE [None]
  - INCREASED TENDENCY TO BRUISE [None]
  - PANCYTOPENIA [None]
